FAERS Safety Report 5566731-5 (Version None)
Quarter: 2007Q4

REPORT INFORMATION
  Report Type: 
  Country: None (occurrence: None)
  Receive Date: 20071219
  Receipt Date: 20071210
  Transmission Date: 20080405
  Serious: Yes (Hospitalization)
  Sender: FDA-Public Use
  Company Number: AU-AMGEN-QUU256178

PATIENT
  Sex: Male
  Weight: 82 kg

DRUGS (7)
  1. NEULASTA [Suspect]
     Indication: CHEMOTHERAPY
     Dates: start: 20070819
  2. CISPLATIN [Concomitant]
     Dates: start: 20070813
  3. ETOPOSIDE [Concomitant]
     Dates: start: 20070813
  4. BLEOMYCIN [Concomitant]
     Dates: start: 20070813
  5. RITONAVIR [Concomitant]
  6. ATAZANAVIR [Concomitant]
  7. KIVEXA [Concomitant]

REACTIONS (1)
  - FEBRILE NEUTROPENIA [None]
